FAERS Safety Report 7179222-5 (Version None)
Quarter: 2010Q4

REPORT INFORMATION
  Report Type: 
  Country: None (occurrence: None)
  Receive Date: 20101221
  Receipt Date: 20101210
  Transmission Date: 20110411
  Serious: Yes (Other)
  Sender: FDA-Public Use
  Company Number: US-PFIZER INC-2010169419

PATIENT
  Sex: Female
  Weight: 56.236 kg

DRUGS (6)
  1. CHANTIX [Suspect]
     Indication: SMOKING CESSATION THERAPY
     Dosage: 0.5 MG, DAILY
     Route: 048
     Dates: start: 20101129
  2. FLEXERIL [Concomitant]
     Indication: NERVE INJURY
     Dosage: 10 MG, AS NEEDED
     Route: 048
     Dates: start: 20090301
  3. LYRICA [Concomitant]
     Indication: NERVE INJURY
     Dosage: 150 MG, 3X/DAY
     Route: 048
     Dates: start: 20090301
  4. ALBUTEROL [Concomitant]
     Indication: CHRONIC OBSTRUCTIVE PULMONARY DISEASE
     Dosage: UNK
     Dates: start: 19950101
  5. SPIRIVA [Concomitant]
     Indication: CHRONIC OBSTRUCTIVE PULMONARY DISEASE
     Dosage: UNK
     Dates: start: 20050101
  6. OXYGEN [Concomitant]
     Dosage: UNK
     Dates: start: 20070101

REACTIONS (1)
  - TONGUE BLISTERING [None]
